FAERS Safety Report 16277542 (Version 2)
Quarter: 2019Q2

REPORT INFORMATION
  Report Type: Spontaneous
  Country: US (occurrence: US)
  Receive Date: 20190506
  Receipt Date: 20190509
  Transmission Date: 20190711
  Serious: Yes (Life-Threatening, Hospitalization, Other)
  Sender: FDA-Public Use
  Company Number: US-PFIZER INC-2019187451

PATIENT
  Age: 66 Year
  Sex: Female

DRUGS (2)
  1. FUROSEMIDE. [Concomitant]
     Active Substance: FUROSEMIDE
     Dosage: UNK (INFUSION)
  2. HEPARIN SODIUM. [Suspect]
     Active Substance: HEPARIN SODIUM
     Indication: ANTICOAGULANT THERAPY
     Dosage: 400 IU/KG, UNK (400 UNITS/KG UFH)

REACTIONS (4)
  - Condition aggravated [Recovering/Resolving]
  - Renal vein thrombosis [Unknown]
  - Acute kidney injury [Unknown]
  - Heparin-induced thrombocytopenia [Recovering/Resolving]
